FAERS Safety Report 10028257 (Version 5)
Quarter: 2015Q2

REPORT INFORMATION
  Report Type: Spontaneous
  Country: US (occurrence: US)
  Receive Date: 20140321
  Receipt Date: 20150618
  Transmission Date: 20150821
  Serious: Yes (Hospitalization, Other)
  Sender: FDA-Public Use
  Company Number: US-SANOFI-AVENTIS-2012SA028332

PATIENT
  Age: 70 Year
  Sex: Male
  Weight: 70 kg

DRUGS (33)
  1. HYDROCORTISONE. [Concomitant]
     Active Substance: HYDROCORTISONE
  2. TOBRAMYCIN. [Concomitant]
     Active Substance: TOBRAMYCIN
  3. MICAFUNGIN [Concomitant]
     Active Substance: MICAFUNGIN
  4. PLAVIX [Suspect]
     Active Substance: CLOPIDOGREL BISULFATE
     Indication: ACUTE CORONARY SYNDROME
     Route: 048
     Dates: start: 20050625, end: 20080323
  5. AVAPRO [Concomitant]
     Active Substance: IRBESARTAN
  6. SUCRALFATE. [Concomitant]
     Active Substance: SUCRALFATE
  7. PROTONIX [Concomitant]
     Active Substance: PANTOPRAZOLE SODIUM
  8. OXYCONTIN [Concomitant]
     Active Substance: OXYCODONE HYDROCHLORIDE
  9. ETOMIDATE. [Concomitant]
     Active Substance: ETOMIDATE
  10. LOPRESSOR [Concomitant]
     Active Substance: METOPROLOL TARTRATE
  11. ATIVAN [Concomitant]
     Active Substance: LORAZEPAM
  12. DILAUDID [Concomitant]
     Active Substance: HYDROMORPHONE HYDROCHLORIDE
  13. ROCURONIUM [Concomitant]
     Active Substance: ROCURONIUM BROMIDE
  14. CARAFATE [Concomitant]
     Active Substance: SUCRALFATE
  15. FENTANYL. [Concomitant]
     Active Substance: FENTANYL
  16. CLINDAMYCIN [Concomitant]
     Active Substance: CLINDAMYCIN\CLINDAMYCIN PHOSPHATE
  17. LOVASTATIN. [Concomitant]
     Active Substance: LOVASTATIN
  18. KLOR-CON [Concomitant]
     Active Substance: POTASSIUM CHLORIDE
  19. ZOFRAN [Concomitant]
     Active Substance: ONDANSETRON HYDROCHLORIDE
  20. DIGOXIN. [Concomitant]
     Active Substance: DIGOXIN
  21. MORPHINE [Concomitant]
     Active Substance: MORPHINE
  22. VASOTEC [Concomitant]
     Active Substance: ENALAPRIL MALEATE
  23. AZACTAM [Concomitant]
     Active Substance: AZTREONAM
  24. ALBUTEROL. [Concomitant]
     Active Substance: ALBUTEROL
  25. ATENOLOL. [Concomitant]
     Active Substance: ATENOLOL
     Route: 048
  26. VANCOMYCIN [Concomitant]
     Active Substance: VANCOMYCIN
  27. VALIUM [Concomitant]
     Active Substance: DIAZEPAM
  28. COLACE [Concomitant]
     Active Substance: DOCUSATE SODIUM
  29. CATAPRES [Concomitant]
     Active Substance: CLONIDINE HYDROCHLORIDE
  30. PLAVIX [Suspect]
     Active Substance: CLOPIDOGREL BISULFATE
     Indication: STENT PLACEMENT
     Route: 048
     Dates: start: 20050625, end: 20080323
  31. LEVOPHED [Concomitant]
     Active Substance: NOREPINEPHRINE BITARTRATE
  32. AZTREONAM. [Concomitant]
     Active Substance: AZTREONAM
  33. TRAZODONE [Concomitant]
     Active Substance: TRAZODONE HYDROCHLORIDE

REACTIONS (3)
  - Multiple injuries [Unknown]
  - Gastrointestinal haemorrhage [Unknown]
  - Haematemesis [Unknown]

NARRATIVE: CASE EVENT DATE: 20080323
